FAERS Safety Report 5473888-3 (Version None)
Quarter: 2007Q4

REPORT INFORMATION
  Report Type: 
  Country: None (occurrence: None)
  Receive Date: 20071001
  Receipt Date: 20070919
  Transmission Date: 20080405
  Serious: Yes (Other)
  Sender: FDA-Public Use
  Company Number: BR-PFIZER INC-2007079070

PATIENT
  Sex: Female

DRUGS (1)
  1. LOMEFLOXACIN HYDROCHLORIDE TABLET [Suspect]
     Indication: URINARY TRACT INFECTION
     Dosage: TEXT:1TABLET-FREQ:1X/DAY: EVERYDAY
     Route: 048

REACTIONS (1)
  - URINARY TRACT INFECTION [None]
